FAERS Safety Report 24570924 (Version 2)
Quarter: 2024Q4

REPORT INFORMATION
  Report Type: Spontaneous
  Country: NZ (occurrence: NZ)
  Receive Date: 20241101
  Receipt Date: 20241105
  Transmission Date: 20250114
  Serious: Yes (Hospitalization, Other)
  Sender: JOHNSON AND JOHNSON
  Company Number: NZ-JNJFOC-20241071181

PATIENT
  Sex: Female

DRUGS (1)
  1. REMICADE [Suspect]
     Active Substance: INFLIXIMAB
     Indication: Colitis ulcerative
     Dosage: ABOUT 2.5 YEARS
     Route: 041

REACTIONS (5)
  - Suicidal ideation [Unknown]
  - Asthenia [Unknown]
  - Hospitalisation [Unknown]
  - Haemorrhage [Unknown]
  - Adverse event [Unknown]
